FAERS Safety Report 25989977 (Version 1)
Quarter: 2025Q4

REPORT INFORMATION
  Report Type: Spontaneous
  Country: US (occurrence: None)
  Receive Date: 20251103
  Receipt Date: 20251103
  Transmission Date: 20260118
  Serious: Yes (Other)
  Sender: FDA-CTU
  Company Number: None

PATIENT
  Age: 76 Year
  Sex: Female

DRUGS (1)
  1. KEVZARA [Suspect]
     Active Substance: SARILUMAB
     Indication: Rheumatoid arthritis
     Dosage: 200 MG SUBCUTANEOUS
     Route: 058
     Dates: start: 20250527

REACTIONS (3)
  - Diarrhoea [None]
  - Haematochezia [None]
  - Fatigue [None]

NARRATIVE: CASE EVENT DATE: 20251015
